FAERS Safety Report 8936631 (Version 1)
Quarter: 2012Q4

REPORT INFORMATION
  Report Type: 
  Country: US (occurrence: US)
  Receive Date: 20121130
  Receipt Date: 20121130
  Transmission Date: 20130627
  Serious: Yes (Hospitalization)
  Sender: FDA-Public Use
  Company Number: US-JNJFOC-20121111435

PATIENT
  Age: 36 Year
  Sex: Female

DRUGS (3)
  1. ACETAMINOPHEN [Suspect]
     Indication: PRODUCT USED FOR UNKNOWN INDICATION
     Dosage: 12 x 500 mg tabs per day for months
     Route: 048
  2. ACETAMINOPHEN [Suspect]
     Indication: PRODUCT USED FOR UNKNOWN INDICATION
     Dosage: afternoon
     Route: 048
     Dates: end: 20091228
  3. VICODIN [Suspect]
     Indication: PRODUCT USED FOR UNKNOWN INDICATION
     Dosage: 1 tablet
     Route: 065
     Dates: start: 20091228

REACTIONS (3)
  - Overdose [Unknown]
  - Liver injury [Recovering/Resolving]
  - International normalised ratio increased [Recovering/Resolving]
